FAERS Safety Report 22631598 (Version 1)
Quarter: 2023Q2

REPORT INFORMATION
  Report Type: Report from Study
  Country: NZ (occurrence: NZ)
  Receive Date: 20230623
  Receipt Date: 20230623
  Transmission Date: 20230722
  Serious: Yes (Hospitalization)
  Sender: FDA-Public Use
  Company Number: NZ-BRISTOL-MYERS SQUIBB COMPANY-2023-083449

PATIENT
  Age: 83 Year
  Sex: Male

DRUGS (4)
  1. LENALIDOMIDE [Suspect]
     Active Substance: LENALIDOMIDE
     Indication: Plasma cell myeloma
     Dosage: DAYS 1-21
     Dates: start: 20230601, end: 20230620
  2. DEXAMETHASONE [Suspect]
     Active Substance: DEXAMETHASONE
     Indication: Plasma cell myeloma
     Dosage: DAYS 1.8.15
     Dates: start: 20230601, end: 20230620
  3. BORTEZOMIB [Suspect]
     Active Substance: BORTEZOMIB
     Indication: Plasma cell myeloma
     Dates: start: 20230601, end: 20230620
  4. BORTEZOMIB [Suspect]
     Active Substance: BORTEZOMIB
     Dosage: DAYS 1,8,15

REACTIONS (2)
  - Cancer fatigue [Recovered/Resolved]
  - Chondrocalcinosis [Unknown]

NARRATIVE: CASE EVENT DATE: 20230601
